FAERS Safety Report 4666041-4 (Version None)
Quarter: 2005Q2

REPORT INFORMATION
  Report Type: 
  Country: None (occurrence: None)
  Receive Date: 20050519
  Receipt Date: 20040819
  Transmission Date: 20051028
  Serious: Yes (Hospitalization)
  Sender: FDA-Public Use
  Company Number: FR-ROCHE-378058

PATIENT
  Age: 44 Year
  Sex: Male

DRUGS (8)
  1. ROFERON-A [Suspect]
     Dosage: FORM: INJECTABLE SOLUTION
     Route: 065
     Dates: start: 20040201, end: 20040619
  2. LOVENOX [Suspect]
     Indication: DRUG USE FOR UNKNOWN INDICATION
     Route: 058
     Dates: start: 20040618, end: 20040628
  3. CORTICOTHERAPY [Concomitant]
  4. SOLU-MEDROL [Concomitant]
     Dosage: DOSAGE REGIMEN: 1 G BOLUS.
  5. CACIT D3 [Concomitant]
     Indication: DRUG USE FOR UNKNOWN INDICATION
     Route: 048
  6. MOPRAL [Concomitant]
     Indication: DRUG USE FOR UNKNOWN INDICATION
     Route: 048
  7. LASILIX [Concomitant]
     Indication: DRUG USE FOR UNKNOWN INDICATION
     Route: 048
  8. PREDNISONE [Concomitant]
     Indication: DRUG USE FOR UNKNOWN INDICATION
     Route: 048

REACTIONS (2)
  - INFECTION [None]
  - PANCYTOPENIA [None]
